FAERS Safety Report 4395429-4 (Version None)
Quarter: 2004Q3

REPORT INFORMATION
  Report Type: 
  Country: None (occurrence: None)
  Receive Date: 20040707
  Receipt Date: 20040623
  Transmission Date: 20050211
  Serious: Yes (Hospitalization)
  Sender: FDA-Public Use
  Company Number: 04P-087-0264664-00

PATIENT
  Age: 64 Year
  Sex: Male

DRUGS (2)
  1. OMNICEF [Suspect]
     Indication: NASOPHARYNGITIS
     Dosage: PER ORAL
     Route: 048
     Dates: start: 20030723, end: 20030728
  2. PL GRAN. [Concomitant]

REACTIONS (4)
  - DRUG ERUPTION [None]
  - GENITAL LESION [None]
  - RASH GENERALISED [None]
  - STOMATITIS [None]
